FAERS Safety Report 5128455-8 (Version None)
Quarter: 2006Q4

REPORT INFORMATION
  Report Type: 
  Country: None (occurrence: None)
  Receive Date: 20061011
  Receipt Date: 20061005
  Transmission Date: 20070319
  Serious: Yes (Hospitalization)
  Sender: FDA-Public Use
  Company Number: S06-USA-04137-01

PATIENT
  Age: 30 Year
  Sex: Female

DRUGS (3)
  1. LEXAPRO [Suspect]
     Indication: DEPRESSION
     Dosage: 10 MG QD PO
     Route: 048
     Dates: start: 20060808, end: 20060928
  2. MAXALT [Suspect]
     Indication: MIGRAINE
  3. SYNTHROID [Concomitant]

REACTIONS (3)
  - DRUG INTERACTION [None]
  - MAJOR DEPRESSION [None]
  - SUICIDAL IDEATION [None]
